FAERS Safety Report 6770963-8 (Version None)
Quarter: 2010Q2

REPORT INFORMATION
  Report Type: 
  Country: None (occurrence: None)
  Receive Date: 20100616
  Receipt Date: 20100615
  Transmission Date: 20101027
  Serious: No
  Sender: FDA-Public Use
  Company Number: US-BIOGENIDEC-2010BI019024

PATIENT
  Age: 58 Year
  Sex: Male

DRUGS (4)
  1. TYSABRI [Suspect]
     Indication: MULTIPLE SCLEROSIS
     Route: 042
     Dates: start: 20061205, end: 20100507
  2. TYSABRI [Suspect]
     Route: 042
     Dates: start: 20100601
  3. FAMPRIDINE [Concomitant]
     Dates: start: 20100420, end: 20100519
  4. FAMPRIDINE [Concomitant]
     Dates: start: 20100520

REACTIONS (1)
  - CONFUSIONAL STATE [None]
